FAERS Safety Report 20605473 (Version 2)
Quarter: 2022Q1

REPORT INFORMATION
  Report Type: Spontaneous
  Country: US (occurrence: US)
  Receive Date: 20220317
  Receipt Date: 20220330
  Transmission Date: 20220423
  Serious: No
  Sender: FDA-Public Use
  Company Number: US-TAKEDA-2022TUS017852

PATIENT
  Sex: Female
  Weight: 76.19 kg

DRUGS (1)
  1. TAKHZYRO [Suspect]
     Active Substance: LANADELUMAB-FLYO
     Indication: Product used for unknown indication
     Dosage: UNK
     Route: 065
     Dates: start: 201905

REACTIONS (2)
  - Pregnancy [Unknown]
  - No adverse event [Unknown]
